FAERS Safety Report 23507155 (Version 3)
Quarter: 2024Q2

REPORT INFORMATION
  Report Type: Report from Study
  Country: FR (occurrence: FR)
  Receive Date: 20240209
  Receipt Date: 20240509
  Transmission Date: 20240715
  Serious: Yes (Other)
  Sender: FDA-Public Use
  Company Number: FR-ABBVIE-5610758

PATIENT
  Age: 46 Year
  Sex: Female
  Weight: 66 kg

DRUGS (11)
  1. ADALIMUMAB [Suspect]
     Active Substance: ADALIMUMAB\ISOPROPYL ALCOHOL
     Dosage: 40 MG, FREQ:2 WK;
     Route: 058
     Dates: start: 20181220
  2. ADALIMUMAB [Suspect]
     Active Substance: ADALIMUMAB\ISOPROPYL ALCOHOL
     Dosage: 40 MG, WEEKLY
     Route: 058
  3. ADALIMUMAB [Suspect]
     Active Substance: ADALIMUMAB\ISOPROPYL ALCOHOL
     Dosage: 80 MG, WEEKLY
     Route: 058
  4. ADALIMUMAB [Suspect]
     Active Substance: ADALIMUMAB\ISOPROPYL ALCOHOL
     Dosage: 40 MG, FREQ:2 WK;
     Route: 058
  5. ACETAMINOPHEN\OPIUM [Concomitant]
     Active Substance: ACETAMINOPHEN\OPIUM
     Indication: Arthralgia
     Dosage: 525 MG
     Route: 048
     Dates: start: 20230208, end: 20230808
  6. CHOLECALCIFEROL [Concomitant]
     Active Substance: CHOLECALCIFEROL
     Indication: Vitamin D deficiency
     Dosage: 200000 IU, FREQ:2 MO;
     Route: 048
     Dates: start: 20230320
  7. CHOLECALCIFEROL [Concomitant]
     Active Substance: CHOLECALCIFEROL
     Indication: Vitamin D deficiency
     Dosage: 50000 IU, WEEKLY
     Route: 048
     Dates: start: 20230208, end: 20230408
  8. CHOLECALCIFEROL [Concomitant]
     Active Substance: CHOLECALCIFEROL
     Dosage: 50000 IU, MONTHLY
     Route: 048
     Dates: start: 20230408, end: 20230808
  9. PREDNISONE [Concomitant]
     Active Substance: PREDNISONE
     Indication: Arthralgia
     Dosage: 2.5 MG
     Route: 048
     Dates: start: 20230320, end: 20230919
  10. PREDNISONE [Concomitant]
     Active Substance: PREDNISONE
     Dosage: 2 MG
     Route: 048
     Dates: start: 20230919
  11. TRAMADOL [Concomitant]
     Active Substance: TRAMADOL\TRAMADOL HYDROCHLORIDE
     Indication: Arthralgia
     Dosage: 50 MG
     Route: 048
     Dates: start: 20230208, end: 20230808

REACTIONS (2)
  - Systemic lupus erythematosus [Recovered/Resolved with Sequelae]
  - Conjunctivitis [Recovered/Resolved with Sequelae]

NARRATIVE: CASE EVENT DATE: 20230320
